FAERS Safety Report 12953155 (Version 2)
Quarter: 2016Q4

REPORT INFORMATION
  Report Type: Spontaneous
  Country: FI (occurrence: FI)
  Receive Date: 20161117
  Receipt Date: 20161123
  Transmission Date: 20170207
  Serious: Yes (Other)
  Sender: FDA-Public Use
  Company Number: PHHY2016FI155515

PATIENT
  Sex: Female

DRUGS (2)
  1. TRILEPTAL [Suspect]
     Active Substance: OXCARBAZEPINE
     Indication: EPILEPSY
     Dosage: UNK
     Route: 065
  2. TRILEPTAL [Suspect]
     Active Substance: OXCARBAZEPINE
     Dosage: 300 MG, BID
     Route: 065

REACTIONS (6)
  - Seizure [Recovered/Resolved]
  - Dementia [Unknown]
  - Condition aggravated [Unknown]
  - Ischaemic stroke [Recovered/Resolved]
  - Off label use [Unknown]
  - Dysphagia [Unknown]
